FAERS Safety Report 9518442 (Version 1)
Quarter: 2013Q1

REPORT INFORMATION
  Report Type: Spontaneous
  Country: US (occurrence: None)
  Receive Date: 20130305
  Receipt Date: 20130305
  Transmission Date: 20140127
  Serious: Yes (Other)
  Sender: FDA-Public Use
  Company Number: 163-21880-12081042

PATIENT
  Age: 82 Year
  Sex: Male

DRUGS (5)
  1. REVLIMID [Suspect]
     Indication: ANAEMIA
     Dosage: 10 MG, 28 IN 28 D, PO
     Route: 048
     Dates: start: 20120618
  2. REVLIMID [Suspect]
     Indication: LYMPHOPROLIFERATIVE DISORDER
     Dosage: 10 MG, 28 IN 28 D, PO
     Route: 048
     Dates: start: 20120618
  3. ALBUTEROL SULFATE (SALBUTAMOL SULFATE) (UNKNOWN) [Concomitant]
  4. IPRATROPIUM-ALBUTEROL (COMBIVENT) (UNKNOWN) [Concomitant]
  5. AMARYL (GLIMEPIRIDE) (UNKNOWN) [Concomitant]

REACTIONS (2)
  - Constipation [None]
  - Cough [None]
